FAERS Safety Report 18176278 (Version 1)
Quarter: 2020Q3

REPORT INFORMATION
  Report Type: Spontaneous
  Country: DE (occurrence: DE)
  Receive Date: 20200820
  Receipt Date: 20200820
  Transmission Date: 20201103
  Serious: Yes (Hospitalization)
  Sender: FDA-Public Use
  Company Number: DE-MYLANLABS-2020M1071485

PATIENT
  Age: 86 Year
  Sex: Female

DRUGS (12)
  1. EBRANTIL                           /00631801/ [Concomitant]
     Active Substance: URAPIDIL
     Dosage: 90 MG, 1?0?0?1, RETARD?KAPSELN
     Route: 048
  2. ELIQUIS [Concomitant]
     Active Substance: APIXABAN
     Dosage: 2.5 MG, 1?0?1?0, TABLETTEN
     Route: 048
  3. SYMBICORT [Concomitant]
     Active Substance: BUDESONIDE\FORMOTEROL FUMARATE DIHYDRATE
     Dosage: 160|4.5 MG, 1?0?1?0, DOSIERAEROSOL
     Route: 055
  4. METAMIZOL                          /06276701/ [Concomitant]
     Active Substance: METAMIZOLE
     Dosage: 500 MG, BEI BEDARF, TROPFEN
     Route: 048
  5. MICARDIS [Concomitant]
     Active Substance: TELMISARTAN
     Dosage: 80 MG, 1?0?0?0, TABLETTEN
     Route: 048
  6. DEKRISTOL [Concomitant]
     Active Substance: CHOLECALCIFEROL
     Dosage: 20000 IE / WOCHE, SONNTAGS, KAPSELN
     Route: 048
  7. PHYSIOTENS [Concomitant]
     Active Substance: MOXONIDINE
     Dosage: 0.2 MG, 1?0?1?1, TABLETTEN
     Route: 048
  8. LEVOTHYROXIN [Concomitant]
     Active Substance: LEVOTHYROXINE
     Dosage: 125 ?G, 1?0?0?0, TABLETTEN
     Route: 048
  9. TORASEMIDE [Suspect]
     Active Substance: TORSEMIDE
     Indication: PRODUCT USED FOR UNKNOWN INDICATION
     Dosage: 10 MILLIGRAM
     Route: 048
     Dates: end: 20200602
  10. VERAPAMIL [Concomitant]
     Active Substance: VERAPAMIL HYDROCHLORIDE
     Dosage: 120 MG, 1?0?1?0, RETARD?TABLETTEN
     Route: 048
  11. TOUJEO [Concomitant]
     Active Substance: INSULIN GLARGINE
     Dosage: 8 IE, 0?1?0?0, AMPULLEN (300EINHEITEN/ML SOLOSTAR 1,5ML PEN)
     Route: 058
  12. GINGIUM [Concomitant]
     Active Substance: GINKGO
     Dosage: 120 MG, 1?0?0?0, TABLETTEN
     Route: 048

REACTIONS (7)
  - Constipation [Unknown]
  - Vomiting [Unknown]
  - Nausea [Unknown]
  - Fatigue [Unknown]
  - General physical health deterioration [Unknown]
  - Condition aggravated [Unknown]
  - Dehydration [Unknown]
